FAERS Safety Report 9219232 (Version 1)
Quarter: 2013Q2

REPORT INFORMATION
  Report Type: Spontaneous
  Country: US (occurrence: US)
  Receive Date: 20130409
  Receipt Date: 20130409
  Transmission Date: 20140414
  Serious: No
  Sender: FDA-Public Use
  Company Number: US-BAYER-2013-043776

PATIENT
  Age: 41 Year
  Sex: Male
  Weight: 95.24 kg

DRUGS (2)
  1. ALEVE TABLET [Suspect]
     Dosage: 4 DF, ONCE
     Route: 048
     Dates: start: 20130328, end: 20130328
  2. ATORVASTATIN [Concomitant]

REACTIONS (2)
  - Overdose [None]
  - Abdominal discomfort [Recovered/Resolved]
